FAERS Safety Report 4691026-1 (Version None)
Quarter: 2005Q2

REPORT INFORMATION
  Report Type: 
  Country: None (occurrence: None)
  Receive Date: 20050610
  Receipt Date: 20050110
  Transmission Date: 20051028
  Serious: Yes (Hospitalization)
  Sender: FDA-Public Use
  Company Number: 2004115908

PATIENT
  Sex: Male

DRUGS (1)
  1. GEODON [Suspect]
     Indication: SCHIZOPHRENIA
     Dosage: ORAL
     Route: 048
     Dates: start: 20030101, end: 20041201

REACTIONS (5)
  - AGGRESSION [None]
  - AMNESIA [None]
  - CARDIAC DISORDER [None]
  - DRUG INEFFECTIVE [None]
  - EUPHORIC MOOD [None]
